FAERS Safety Report 6367139-5 (Version None)
Quarter: 2009Q3

REPORT INFORMATION
  Report Type: 
  Country: None (occurrence: None)
  Receive Date: 20090921
  Receipt Date: 20090911
  Transmission Date: 20100115
  Serious: Yes (Death, Hospitalization)
  Sender: FDA-Public Use
  Company Number: CA-ABBOTT-08P-028-0475799-00

PATIENT
  Sex: Male
  Weight: 83 kg

DRUGS (12)
  1. HUMIRA [Suspect]
     Indication: RHEUMATOID ARTHRITIS
     Route: 058
     Dates: start: 20080617, end: 20080826
  2. METHOTREXATE [Suspect]
     Indication: RHEUMATOID ARTHRITIS
     Route: 048
     Dates: start: 20080617, end: 20080826
  3. COVERSYL [Concomitant]
     Indication: HYPERTENSION
     Dates: start: 20060601
  4. NEXIUM [Concomitant]
     Indication: GASTROOESOPHAGEAL REFLUX DISEASE
     Dates: start: 20061129
  5. INDOMETHACIN [Concomitant]
     Indication: ARTHRALGIA
     Dates: start: 20060501
  6. PAROXETINE HCL [Concomitant]
     Indication: DEPRESSION
     Dates: start: 20080401
  7. ZOPICLONE [Concomitant]
     Indication: INSOMNIA
     Dates: start: 20080329
  8. ATIVAN [Concomitant]
     Indication: ANXIETY
     Dates: start: 20080401
  9. GLUCOSAMINE [Concomitant]
     Indication: ARTHRALGIA
     Dates: start: 20070101
  10. TYLENOL (CAPLET) [Concomitant]
     Indication: ARTHRALGIA
     Dates: start: 20080401
  11. TRAMACET [Concomitant]
     Indication: ARTHRALGIA
     Dates: start: 20080213
  12. FOLIC ACID [Concomitant]
     Indication: VITAMIN SUPPLEMENTATION
     Dates: start: 20080620

REACTIONS (1)
  - INTERSTITIAL LUNG DISEASE [None]
